FAERS Safety Report 14283140 (Version 1)
Quarter: 2017Q4

REPORT INFORMATION
  Report Type: Spontaneous
  Country: US (occurrence: US)
  Receive Date: 20171213
  Receipt Date: 20171213
  Transmission Date: 20180321
  Serious: No
  Sender: FDA-Public Use
  Company Number: PHEH2017US038958

PATIENT
  Age: 16 Year
  Sex: Male

DRUGS (1)
  1. CLOMIPRAMINE HYDROCHLORIDE. [Suspect]
     Active Substance: CLOMIPRAMINE HYDROCHLORIDE
     Indication: AUTISM SPECTRUM DISORDER
     Dosage: 2 DF, QD
     Route: 048
     Dates: start: 20171126

REACTIONS (4)
  - Somnolence [Unknown]
  - Dizziness [Unknown]
  - Pallor [Unknown]
  - Wrong technique in product usage process [Unknown]

NARRATIVE: CASE EVENT DATE: 20171128
